FAERS Safety Report 8034313-1 (Version None)
Quarter: 2012Q1

REPORT INFORMATION
  Report Type: 
  Country: None (occurrence: None)
  Receive Date: 20120110
  Receipt Date: 20120109
  Transmission Date: 20120608
  Serious: Yes (Hospitalization, Other)
  Sender: FDA-Public Use
  Company Number: PHHO2011DE018414

PATIENT
  Sex: Female
  Weight: 99 kg

DRUGS (3)
  1. LETROZOLE [Suspect]
     Indication: BREAST CANCER
     Dosage: 2.5 MG, QD
     Route: 048
     Dates: start: 20070112, end: 20110416
  2. LEVOTHYROXINE SODIUM [Concomitant]
     Indication: HYPOTHYROIDISM
     Dosage: 150 MG, BID
     Route: 048
     Dates: start: 20010101
  3. LETROZOLE [Suspect]
     Dosage: 2.5 MG, QD
     Route: 048
     Dates: start: 20110419

REACTIONS (7)
  - INTERMITTENT CLAUDICATION [None]
  - SPONDYLOLISTHESIS [None]
  - SPINAL COLUMN STENOSIS [None]
  - LEUKOPENIA [None]
  - LUMBAR VERTEBRAL FRACTURE [None]
  - COLON CANCER [None]
  - NEOPLASM MALIGNANT [None]
